FAERS Safety Report 24788612 (Version 2)
Quarter: 2025Q1

REPORT INFORMATION
  Report Type: Spontaneous
  Country: FR (occurrence: FR)
  Receive Date: 20241230
  Receipt Date: 20250201
  Transmission Date: 20250408
  Serious: Yes (Hospitalization)
  Sender: ROCHE
  Company Number: FR-ROCHE-10000164156

PATIENT
  Age: 63 Year
  Sex: Male

DRUGS (1)
  1. VABYSMO [Suspect]
     Active Substance: FARICIMAB-SVOA
     Indication: Retinal pigment epitheliopathy
     Route: 050
     Dates: start: 20240715

REACTIONS (7)
  - Uveitis [Recovering/Resolving]
  - Corneal deposits [Recovering/Resolving]
  - Anterior chamber flare [Recovered/Resolved]
  - Vitritis [Not Recovered/Not Resolved]
  - Ocular hypertension [Recovering/Resolving]
  - Ocular vasculitis [Recovering/Resolving]
  - Off label use [Unknown]

NARRATIVE: CASE EVENT DATE: 20241112
